FAERS Safety Report 24646900 (Version 1)
Quarter: 2024Q4

REPORT INFORMATION
  Report Type: Other
  Country: US (occurrence: US)
  Receive Date: 20241121
  Receipt Date: 20241121
  Transmission Date: 20250114
  Serious: Yes (Other)
  Sender: Aarkish Pharmaceuticals
  Company Number: US-Aarkish Pharmaceuticals NJ Inc.-2165584

PATIENT
  Age: 6 Decade
  Sex: Female
  Weight: 58.9 kg

DRUGS (1)
  1. ACETAZOLAMIDE [Suspect]
     Active Substance: ACETAZOLAMIDE
     Indication: Idiopathic intracranial hypertension

REACTIONS (2)
  - Neuropathy peripheral [Unknown]
  - Product use in unapproved indication [Unknown]
